FAERS Safety Report 12540184 (Version 5)
Quarter: 2016Q4

REPORT INFORMATION
  Report Type: Spontaneous
  Country: GB (occurrence: GB)
  Receive Date: 20160708
  Receipt Date: 20161223
  Transmission Date: 20170207
  Serious: Yes (Death, Life-Threatening, Hospitalization)
  Sender: FDA-Public Use
  Company Number: GB-NOVOPROD-499168

PATIENT
  Age: 47 Year
  Sex: Female
  Weight: 70 kg

DRUGS (7)
  1. NOVORAPID [Suspect]
     Active Substance: INSULIN ASPART
     Dosage: BETWEEN 50-60 IU, QD
     Route: 058
  2. NOVORAPID [Suspect]
     Active Substance: INSULIN ASPART
     Indication: TYPE 1 DIABETES MELLITUS
     Dosage: UNK
     Route: 058
     Dates: start: 20150908, end: 20151125
  3. STEROIDS [Concomitant]
     Active Substance: UNSPECIFIED INGREDIENT
     Indication: MUSCULOSKELETAL DISCOMFORT
     Dosage: UNK
     Dates: start: 20160609, end: 20160609
  4. FLUOXETINE [Concomitant]
     Active Substance: FLUOXETINE HYDROCHLORIDE
     Indication: DEPRESSION
     Dosage: 20 MG, UNK
     Route: 048
     Dates: start: 201601
  5. STEROIDS [Concomitant]
     Active Substance: UNSPECIFIED INGREDIENT
     Dosage: UNK
     Dates: start: 20160419, end: 20160419
  6. STEROIDS [Concomitant]
     Active Substance: UNSPECIFIED INGREDIENT
     Dosage: 40 MG, UNK
     Dates: start: 20160516, end: 20160516
  7. NOVORAPID [Suspect]
     Active Substance: INSULIN ASPART
     Dosage: UNK
     Dates: start: 20160119

REACTIONS (4)
  - Diabetic ketoacidosis [Fatal]
  - Product leakage [Unknown]
  - Cardiac arrest [Fatal]
  - Product container issue [Unknown]

NARRATIVE: CASE EVENT DATE: 20160612
